FAERS Safety Report 4740544-6 (Version None)
Quarter: 2005Q3

REPORT INFORMATION
  Report Type: 
  Country: None (occurrence: None)
  Receive Date: 20050809
  Receipt Date: 20050809
  Transmission Date: 20060218
  Serious: Yes (Hospitalization)
  Sender: FDA-Public Use
  Company Number: ITA006

PATIENT
  Sex: Male
  Weight: 76 kg

DRUGS (13)
  1. RAPAMUNE [Suspect]
     Indication: TRANSPLANT
     Dosage: 11 MG, DAILY, ORAL
     Route: 048
     Dates: start: 20050329
  2. PROGRAF [Suspect]
     Indication: TRANSPLANT
     Dosage: 2 MG, TWICE DAILY, ORAL
     Route: 048
     Dates: start: 20050329
  3. ALLOGENEIC HUMAN ISLETS [Concomitant]
  4. ACYCLOVIR [Concomitant]
  5. ALTACE [Concomitant]
  6. ASPIRIN [Concomitant]
  7. BACTRIM [Concomitant]
  8. FOLIC ACID [Concomitant]
  9. HUMALOG [Concomitant]
  10. LANTUS [Concomitant]
  11. LEVOTHROID [Concomitant]
  12. ASCORBIC ACID [Concomitant]
  13. VITAMIN E [Concomitant]

REACTIONS (16)
  - ABDOMINAL PAIN [None]
  - DIARRHOEA [None]
  - DRUG DOSE OMISSION [None]
  - FATIGUE [None]
  - GASTROINTESTINAL INFECTION [None]
  - HYPOMAGNESAEMIA [None]
  - HYPOPHOSPHATAEMIA [None]
  - HYPOVOLAEMIA [None]
  - LUNG INFECTION [None]
  - MOUTH ULCERATION [None]
  - NAUSEA [None]
  - NEUTROPHIL PERCENTAGE INCREASED [None]
  - PNEUMONIA [None]
  - SPUTUM CULTURE POSITIVE [None]
  - VOMITING [None]
  - WHITE BLOOD CELL COUNT INCREASED [None]
